FAERS Safety Report 21233671 (Version 1)
Quarter: 2022Q3

REPORT INFORMATION
  Report Type: Spontaneous
  Country: None (occurrence: ES)
  Receive Date: 20220819
  Receipt Date: 20220819
  Transmission Date: 20221027
  Serious: Yes (Other)
  Sender: FDA-Public Use
  Company Number: ES-Nova Laboratories Limited-2132061

PATIENT
  Age: 55 Year
  Sex: Male

DRUGS (7)
  1. PURIXAN [Suspect]
     Active Substance: MERCAPTOPURINE
     Indication: Colitis ulcerative
  2. AMPICILLIN [AMPICILLIN POTASSIUM] (AMPICILLIN POTASSIUM) [Concomitant]
  3. PREDNISONE [Concomitant]
     Active Substance: PREDNISONE
  4. VANCOMYCIN [Concomitant]
     Active Substance: VANCOMYCIN
  5. REMICADE [Concomitant]
     Active Substance: INFLIXIMAB
  6. CEFTRIAXONE [Concomitant]
     Active Substance: CEFTRIAXONE
  7. ACYCLOVIR [ACICLOVIR] (ACYCLOVIR [ACICLOVIR]) [Concomitant]

REACTIONS (2)
  - Herpes zoster meningoencephalitis [Recovered/Resolved]
  - Off label use [None]
